FAERS Safety Report 18074659 (Version 1)
Quarter: 2020Q3

REPORT INFORMATION
  Report Type: Spontaneous
  Country: US (occurrence: US)
  Receive Date: 20200727
  Receipt Date: 20200727
  Transmission Date: 20201103
  Serious: No
  Sender: FDA-Public Use
  Company Number: US-ABBVIE-19K-163-2938474-00

PATIENT
  Sex: Female

DRUGS (7)
  1. NP THYROID [Suspect]
     Active Substance: LEVOTHYROXINE\LIOTHYRONINE
     Indication: HYPOTHYROIDISM
     Route: 065
     Dates: start: 201612
  2. NP THYROID [Suspect]
     Active Substance: LEVOTHYROXINE\LIOTHYRONINE
     Dosage: TAKE 1 TAB IN MORNING  VIA CHEWING AND DISSOLVE UNDER TONGUE
     Route: 048
  3. NP THYROID [Suspect]
     Active Substance: LEVOTHYROXINE\LIOTHYRONINE
     Dosage: TAKE 1 TAB IN MORNING AND  TAKE 1 TAB IN EVENING VIA CHEWING AND DISSOLVE UNDER TONGUE
     Route: 048
  4. NP THYROID [Suspect]
     Active Substance: LEVOTHYROXINE\LIOTHYRONINE
     Route: 065
     Dates: start: 20190514
  5. SYNTHROID [Suspect]
     Active Substance: LEVOTHYROXINE SODIUM
     Indication: PRODUCT USED FOR UNKNOWN INDICATION
     Route: 048
     Dates: start: 201909
  6. LEVOTHYROXINE. [Suspect]
     Active Substance: LEVOTHYROXINE
     Indication: PRODUCT USED FOR UNKNOWN INDICATION
     Route: 065
  7. NP THYROID [Suspect]
     Active Substance: LEVOTHYROXINE\LIOTHYRONINE
     Route: 065
     Dates: start: 201909

REACTIONS (6)
  - Product colour issue [Not Recovered/Not Resolved]
  - Discomfort [Not Recovered/Not Resolved]
  - Choking [Unknown]
  - Adverse reaction [Unknown]
  - Product physical consistency issue [Not Recovered/Not Resolved]
  - Product odour abnormal [Not Recovered/Not Resolved]
